FAERS Safety Report 8393666-5 (Version None)
Quarter: 2012Q2

REPORT INFORMATION
  Report Type: 
  Country: None (occurrence: None)
  Receive Date: 20120530
  Receipt Date: 20120522
  Transmission Date: 20120825
  Serious: No
  Sender: FDA-Public Use
  Company Number: US-BIOGENIDEC-2010BI012360

PATIENT
  Sex: Female

DRUGS (2)
  1. TYSABRI [Suspect]
     Indication: MULTIPLE SCLEROSIS
     Route: 042
     Dates: start: 20080519, end: 20120314
  2. REBIF [Concomitant]
     Indication: MULTIPLE SCLEROSIS

REACTIONS (6)
  - HYPOAESTHESIA [None]
  - MYELITIS TRANSVERSE [None]
  - MOBILITY DECREASED [None]
  - FALL [None]
  - DYSSTASIA [None]
  - FATIGUE [None]
